FAERS Safety Report 5420413-9 (Version None)
Quarter: 2007Q3

REPORT INFORMATION
  Report Type: 
  Country: None (occurrence: None)
  Receive Date: 20070816
  Receipt Date: 20070806
  Transmission Date: 20080115
  Serious: Yes (Hospitalization)
  Sender: FDA-Public Use
  Company Number: APP200700255

PATIENT
  Age: 17 Year
  Sex: Male

DRUGS (5)
  1. DEXAMETHASONE SODIUM PHOSPHATE [Suspect]
     Indication: ACUTE LYMPHOCYTIC LEUKAEMIA
  2. DOXORUBICIN [Suspect]
     Indication: ACUTE LYMPHOCYTIC LEUKAEMIA
  3. VINCRISTINE [Suspect]
     Indication: ACUTE LYMPHOCYTIC LEUKAEMIA
  4. POLYETHYLENE GLUCOL-ASPARAGINASE [Concomitant]
  5. RANITIDINE [Concomitant]

REACTIONS (11)
  - ASCITES [None]
  - CONSTIPATION [None]
  - DIALYSIS [None]
  - DIVERTICULAR PERFORATION [None]
  - ESCHERICHIA SEPSIS [None]
  - FEBRILE NEUTROPENIA [None]
  - GASTRITIS [None]
  - HAEMATEMESIS [None]
  - ILEUS [None]
  - MUCOSAL INFLAMMATION [None]
  - PNEUMOPERITONEUM [None]
